FAERS Safety Report 9982637 (Version 1)
Quarter: 2014Q1

REPORT INFORMATION
  Report Type: Report from Study
  Country: US (occurrence: US)
  Receive Date: 20140307
  Receipt Date: 20140307
  Transmission Date: 20141002
  Serious: No
  Sender: FDA-Public Use
  Company Number: US-ABBVIE-13P-163-1179235-00

PATIENT
  Age: 38 Year
  Sex: Male

DRUGS (6)
  1. HUMIRA [Suspect]
     Indication: PSORIASIS
     Dates: start: 2012, end: 201309
  2. HUMIRA [Suspect]
     Dates: start: 20131129
  3. METFORMIN [Concomitant]
     Indication: DIABETES MELLITUS
  4. LISINOPRIL [Concomitant]
     Indication: HYPERTENSION
  5. TEMAZEPAM [Concomitant]
     Indication: ANXIETY
  6. CITALOPRAM [Concomitant]
     Indication: ANXIETY

REACTIONS (2)
  - Anxiety [Recovered/Resolved]
  - Hepatic enzyme increased [Recovered/Resolved]
